FAERS Safety Report 16911026 (Version 1)
Quarter: 2019Q4

REPORT INFORMATION
  Report Type: Spontaneous
  Country: US (occurrence: US)
  Receive Date: 20190821
  Receipt Date: 20190821
  Transmission Date: 20200122
  Serious: No
  Sender: FDA-Public Use
  Company Number: None

PATIENT
  Sex: Female

DRUGS (1)
  1. HARVONI [Suspect]
     Active Substance: LEDIPASVIR\SOFOSBUVIR
     Indication: HEPATITIS VIRAL
     Route: 048
     Dates: start: 20190808, end: 20190811

REACTIONS (4)
  - Dyspnoea [None]
  - Swelling face [None]
  - Rash [None]
  - Mouth ulceration [None]
